FAERS Safety Report 8246646-4 (Version None)
Quarter: 2012Q1

REPORT INFORMATION
  Report Type: 
  Country: None (occurrence: None)
  Receive Date: 20120330
  Receipt Date: 20120326
  Transmission Date: 20120608
  Serious: Yes (Death, Hospitalization)
  Sender: FDA-Public Use
  Company Number: JP-EISAI INC-E7389-02233-CLI-JP

PATIENT
  Sex: Female
  Weight: 49 kg

DRUGS (27)
  1. HALAVEN [Suspect]
     Indication: METASTASES TO LIVER
     Route: 041
     Dates: start: 20111118, end: 20111118
  2. FLURBIPROFEN [Concomitant]
     Route: 041
  3. FENTANYL [Concomitant]
     Route: 041
  4. PREGABALIN [Concomitant]
     Route: 048
  5. FAMOTIDINE [Concomitant]
     Route: 041
  6. FENTANYL-100 [Concomitant]
     Route: 065
  7. HALAVEN [Suspect]
     Indication: BREAST CANCER RECURRENT
     Route: 041
     Dates: start: 20111202, end: 20120203
  8. KYTRIL [Concomitant]
     Route: 048
  9. CYMBALTA [Concomitant]
     Route: 048
  10. ALOXI [Concomitant]
     Indication: PROPHYLAXIS
     Route: 041
  11. HALAVEN [Suspect]
  12. SENNOSIDE [Concomitant]
     Indication: PROPHYLAXIS
     Route: 048
  13. BETAMETHASONE [Concomitant]
     Route: 048
  14. MORPHINE [Concomitant]
     Route: 048
  15. MORPHINE [Concomitant]
     Route: 041
  16. HALAVEN [Suspect]
     Indication: METASTASES TO BONE
  17. CELEBREX [Concomitant]
     Route: 048
  18. ELNEOPA NO 2 [Concomitant]
     Route: 041
  19. PRIMPERAN TAB [Concomitant]
     Route: 048
  20. NEXIUM [Concomitant]
     Indication: PROPHYLAXIS
     Route: 048
  21. KYTRIL [Concomitant]
     Indication: PROPHYLAXIS
     Route: 041
  22. PYDOXAL [Concomitant]
     Route: 048
  23. GOSHAJINKIGAN [Concomitant]
     Route: 048
  24. OXYCONTIN [Concomitant]
     Route: 048
  25. EMEND [Concomitant]
     Indication: PROPHYLAXIS
     Route: 048
  26. MOTILIUM [Concomitant]
     Route: 065
  27. CEFPIROME SULFATE [Concomitant]
     Route: 041

REACTIONS (1)
  - TUMOUR LYSIS SYNDROME [None]
